APPROVED DRUG PRODUCT: HYDROXYZINE HYDROCHLORIDE
Active Ingredient: HYDROXYZINE HYDROCHLORIDE
Strength: 10MG
Dosage Form/Route: TABLET;ORAL
Application: A087871 | Product #002 | TE Code: AB
Applicant: AUROBINDO PHARMA LTD
Approved: Dec 20, 1982 | RLD: No | RS: No | Type: RX